FAERS Safety Report 17553325 (Version 1)
Quarter: 2020Q1

REPORT INFORMATION
  Report Type: Spontaneous
  Country: GB (occurrence: GB)
  Receive Date: 20200318
  Receipt Date: 20200318
  Transmission Date: 20200409
  Serious: Yes (Other)
  Sender: FDA-Public Use
  Company Number: GB-TEVA-2020-GB-1202292

PATIENT
  Age: 50 Year
  Sex: Male
  Weight: 108 kg

DRUGS (2)
  1. TRIMETHOPRIM. [Suspect]
     Active Substance: TRIMETHOPRIM
     Dosage: 400MG
     Dates: start: 20200222
  2. CO-AMOXICLAV [Concomitant]
     Active Substance: AMOXICILLIN\CLAVULANATE POTASSIUM
     Dosage: FOR SEVEN DAYS, 1 DOSAGE FORM
     Dates: start: 20200225

REACTIONS (2)
  - Insomnia [Unknown]
  - Wheezing [Unknown]

NARRATIVE: CASE EVENT DATE: 20200225
